FAERS Safety Report 6577541-4 (Version None)
Quarter: 2010Q1

REPORT INFORMATION
  Report Type: 
  Country: None (occurrence: None)
  Receive Date: 20100211
  Receipt Date: 20100128
  Transmission Date: 20100710
  Serious: Yes (Hospitalization)
  Sender: FDA-Public Use
  Company Number: FR-JNJFOC-20100204059

PATIENT
  Sex: Female

DRUGS (12)
  1. IXPRIM [Suspect]
     Indication: HERNIA PAIN
     Route: 048
  2. TOPALGIC [Suspect]
     Indication: HERNIA PAIN
     Route: 048
  3. LYRICA [Suspect]
     Indication: HERNIA PAIN
     Route: 048
  4. LYRICA [Suspect]
     Route: 048
  5. ATENOLOL [Concomitant]
     Route: 065
  6. KARDEGIC [Concomitant]
     Route: 065
  7. NITROGLYCERIN [Concomitant]
     Route: 065
  8. LEVOTHYROXINE SODIUM [Concomitant]
     Route: 065
  9. INIPOMP [Concomitant]
     Route: 065
  10. FORLAX [Concomitant]
     Route: 065
  11. LIPANTHYL [Concomitant]
     Route: 065
  12. PLAVIX [Concomitant]
     Route: 065

REACTIONS (9)
  - BALANCE DISORDER [None]
  - DECREASED APPETITE [None]
  - DIZZINESS [None]
  - DRY MOUTH [None]
  - HYPERHIDROSIS [None]
  - MALAISE [None]
  - VOMITING [None]
  - WEIGHT DECREASED [None]
  - WITHDRAWAL SYNDROME [None]
